FAERS Safety Report 5712286-1 (Version None)
Quarter: 2008Q2

REPORT INFORMATION
  Report Type: 
  Country: None (occurrence: None)
  Receive Date: 20080421
  Receipt Date: 20080421
  Transmission Date: 20081010
  Serious: Yes (Hospitalization)
  Sender: FDA-Public Use
  Company Number: None

PATIENT
  Sex: Female
  Weight: 76.6 kg

DRUGS (3)
  1. TAXOTERE [Suspect]
     Indication: BREAST CANCER
     Dosage: 60MG/M2 -DOSE REDUCED 45MG/M2- EVERY 3 WEEKS IV
     Route: 042
     Dates: start: 20070627, end: 20080318
  2. HERCEPTIN [Suspect]
     Indication: BREAST CANCER
     Dosage: 6MG/M2  EVERY 3 WEEKS IV
     Route: 042
     Dates: start: 20070627, end: 20080318
  3. IRESSA [Concomitant]

REACTIONS (5)
  - FACE INJURY [None]
  - FALL [None]
  - JOINT DISLOCATION [None]
  - LIMB INJURY [None]
  - NERVE INJURY [None]
